FAERS Safety Report 4550750-1 (Version None)
Quarter: 2004Q4

REPORT INFORMATION
  Report Type: 
  Country: None (occurrence: None)
  Receive Date: 20041217
  Receipt Date: 20040927
  Transmission Date: 20050328
  Serious: No
  Sender: FDA-Public Use
  Company Number: 2004-BP-08952BP(0)

PATIENT
  Age: 71 Year
  Sex: Male

DRUGS (3)
  1. SPIRIVA [Suspect]
     Indication: CHRONIC OBSTRUCTIVE AIRWAYS DISEASE
     Dosage: 18 MCG (18 MCG), IH
     Route: 055
     Dates: start: 20040801, end: 20040901
  2. PRILOSEC [Concomitant]
  3. LIPITOR [Concomitant]

REACTIONS (5)
  - BLOOD PRESSURE INCREASED [None]
  - DYSPNOEA EXACERBATED [None]
  - EXERCISE TOLERANCE DECREASED [None]
  - PALPITATIONS [None]
  - WHEEZING [None]
